FAERS Safety Report 13064064 (Version 6)
Quarter: 2019Q3

REPORT INFORMATION
  Report Type: Spontaneous
  Country: US (occurrence: US)
  Receive Date: 20161227
  Receipt Date: 20190913
  Transmission Date: 20191004
  Serious: Yes (Other)
  Sender: FDA-Public Use
  Company Number: US-PFIZER INC-2016545667

PATIENT
  Age: 76 Year
  Sex: Female

DRUGS (5)
  1. ARTHROTEC [Suspect]
     Active Substance: DICLOFENAC SODIUM\MISOPROSTOL
     Dosage: 1 DF, 2X/DAY (STRENGTH: 50/0.2 MG)
     Route: 048
  2. ARTHROTEC [Suspect]
     Active Substance: DICLOFENAC SODIUM\MISOPROSTOL
     Dosage: 50 MG, 1X/DAY
     Route: 048
  3. ARTHROTEC [Suspect]
     Active Substance: DICLOFENAC SODIUM\MISOPROSTOL
     Dosage: 50 MG, 1X/DAY (1 PILL EVERY MORNING AFTER BREAKFAST)
     Route: 048
  4. ATORVASTATIN [Concomitant]
     Active Substance: ATORVASTATIN
     Indication: BLOOD CHOLESTEROL
     Dosage: 10 MG, 1X/DAY, [ONCE AT NIGHT WHEN I GO TO BED]
  5. ARTHROTEC [Suspect]
     Active Substance: DICLOFENAC SODIUM\MISOPROSTOL
     Indication: ARTHRITIS
     Dosage: 1 DF, DAILY

REACTIONS (12)
  - Fall [Unknown]
  - Intentional product use issue [Unknown]
  - Cardiac disorder [Unknown]
  - Diabetes mellitus [Unknown]
  - Gastrooesophageal reflux disease [Unknown]
  - Duodenal ulcer [Unknown]
  - Pain [Unknown]
  - Anxiety [Unknown]
  - Gastric ulcer [Unknown]
  - Posture abnormal [Unknown]
  - Upper limb fracture [Unknown]
  - Confusional state [Unknown]

NARRATIVE: CASE EVENT DATE: 20190328
